FAERS Safety Report 9696936 (Version 3)
Quarter: 2013Q4

REPORT INFORMATION
  Report Type: Spontaneous
  Country: ES (occurrence: ES)
  Receive Date: 20131119
  Receipt Date: 20131202
  Transmission Date: 20140711
  Serious: Yes (Death, Hospitalization)
  Sender: FDA-Public Use
  Company Number: ES-BAXTER-2013BAX045388

PATIENT
  Age: 73 Year
  Sex: Male

DRUGS (2)
  1. EXTRANEAL [Suspect]
     Indication: PERITONEAL DIALYSIS
     Dosage: 1 BAG
     Route: 033
     Dates: end: 20131113
  2. PHYSIONEAL 40 GLUCOSA 2,27% P/V/22,7 MG/ML. SOL. DIAL.PERIT. [Suspect]
     Indication: PERITONEAL DIALYSIS
     Dosage: 3 BAGS
     Route: 033
     Dates: end: 20131113

REACTIONS (3)
  - Cardiac failure [Fatal]
  - Infarction [Not Recovered/Not Resolved]
  - General physical health deterioration [Unknown]
